FAERS Safety Report 19931614 (Version 1)
Quarter: 2021Q4

REPORT INFORMATION
  Report Type: Spontaneous
  Country: CN (occurrence: CN)
  Receive Date: 20211007
  Receipt Date: 20211007
  Transmission Date: 20220303
  Serious: Yes (Hospitalization, Disabling)
  Sender: FDA-Public Use
  Company Number: CN-PFIZER INC-202101289034

PATIENT
  Age: 34 Year
  Sex: Female
  Weight: 54 kg

DRUGS (2)
  1. CYTARABINE [Suspect]
     Active Substance: CYTARABINE
     Indication: Acute myeloid leukaemia
     Dosage: 4.5 G, 2X/DAY (4.5 G ONCE EVERY 12 HOURS D1-3)
     Route: 041
     Dates: start: 20210909, end: 20210911
  2. SODIUM CHLORIDE [Concomitant]
     Active Substance: SODIUM CHLORIDE
     Indication: Vehicle solution use
     Dosage: 250 ML, 2X/DAY (Q12H)
     Route: 041
     Dates: start: 20210909, end: 20210911

REACTIONS (4)
  - Agranulocytosis [Recovering/Resolving]
  - Erythema [Unknown]
  - Skin swelling [Unknown]
  - Pyrexia [Unknown]

NARRATIVE: CASE EVENT DATE: 20210917
